FAERS Safety Report 9515233 (Version 1)
Quarter: 2013Q1

REPORT INFORMATION
  Report Type: Spontaneous
  Country: US (occurrence: None)
  Receive Date: 20130305
  Receipt Date: 20130305
  Transmission Date: 20140127
  Serious: Yes (Hospitalization)
  Sender: FDA-Public Use
  Company Number: 163-21880-12113934

PATIENT
  Age: 89 Year
  Sex: Male
  Weight: 71.67 kg

DRUGS (2)
  1. REVLIMID [Suspect]
     Indication: PLASMA CELL MYELOMA
     Route: 048
     Dates: start: 20120515, end: 201211
  2. ZOMETA (ZOLEDRONIC ACID) [Concomitant]

REACTIONS (1)
  - Transient ischaemic attack [None]
